FAERS Safety Report 16794243 (Version 2)
Quarter: 2019Q3

REPORT INFORMATION
  Report Type: Spontaneous
  Country: ES (occurrence: ES)
  Receive Date: 20190911
  Receipt Date: 20190926
  Transmission Date: 20191005
  Serious: Yes (Other)
  Sender: FDA-Public Use
  Company Number: ES-GLAXOSMITHKLINE-ES2019162668

PATIENT
  Sex: Male

DRUGS (21)
  1. DEPAKINE (VALPROIC ACID) [Suspect]
     Active Substance: VALPROIC ACID
     Indication: MIGRAINE
     Dosage: 500 MG, UNK
     Route: 065
     Dates: start: 201211
  2. TRYPTIZOL [Suspect]
     Active Substance: AMITRIPTYLINE HYDROCHLORIDE
     Indication: MIGRAINE
     Dosage: 1 DF, QD
     Route: 065
  3. TRYPTIZOL [Suspect]
     Active Substance: AMITRIPTYLINE HYDROCHLORIDE
     Dosage: 10 MG, QD
     Dates: start: 201211
  4. RELPAX [Suspect]
     Active Substance: ELETRIPTAN HYDROBROMIDE
     Indication: MIGRAINE
     Dosage: UNK
     Route: 065
  5. PAROXETINE. [Suspect]
     Active Substance: PAROXETINE
     Indication: MIGRAINE
     Dosage: UNK
     Route: 065
  6. IBUPROFEN. [Suspect]
     Active Substance: IBUPROFEN
     Indication: MIGRAINE
     Dosage: UNK
     Route: 065
  7. ZOMIG [Suspect]
     Active Substance: ZOLMITRIPTAN
     Indication: MIGRAINE
     Dosage: UNK
     Route: 065
  8. MAXALT [Suspect]
     Active Substance: RIZATRIPTAN BENZOATE
     Indication: MIGRAINE
     Dosage: UNK
     Route: 065
  9. VOLTAREN [Suspect]
     Active Substance: DICLOFENAC SODIUM
     Indication: MIGRAINE
     Dosage: UNK
     Route: 065
  10. LEXATIN [BROMAZEPAM] [Suspect]
     Active Substance: BROMAZEPAM
     Indication: MIGRAINE
     Dosage: 3 MG, UNK
     Route: 065
  11. TOPIRAMATO [Suspect]
     Active Substance: TOPIRAMATE
     Indication: MIGRAINE
     Dosage: 25 MG, UNK
     Route: 065
     Dates: start: 200906
  12. TOPIRAMATO [Suspect]
     Active Substance: TOPIRAMATE
     Dosage: 50 MG, UNKNOWN
     Route: 065
  13. HEMICRANEAL (CAFFEINE\ERGOTAMINE TARTRATE\PARACETAMOL) [Suspect]
     Active Substance: ACETAMINOPHEN\CAFFEINE\ERGOTAMINE TARTRATE
     Indication: MIGRAINE
     Dosage: UNK
     Route: 065
  14. AMITRIPTILINA [Suspect]
     Active Substance: AMITRIPTYLINE HYDROCHLORIDE
     Indication: MIGRAINE
     Dosage: 10 MG, QD
     Route: 065
     Dates: start: 201110
  15. LISALGIL [Suspect]
     Active Substance: METAMIZOLE SODIUM
     Indication: MIGRAINE
     Dosage: UNK
     Route: 065
  16. PREDNISONE. [Suspect]
     Active Substance: PREDNISONE
     Indication: MIGRAINE
     Dosage: 60 MG, QD
     Route: 065
  17. BOTOX [Suspect]
     Active Substance: ONABOTULINUMTOXINA
     Indication: MIGRAINE
     Dosage: UNK, SINGLE
     Route: 065
  18. XEOMIN [Suspect]
     Active Substance: INCOBOTULINUMTOXINA
     Indication: MIGRAINE
     Dosage: 150 UNITS, UNKNOWN
     Route: 065
     Dates: start: 20130307
  19. BOTOX [Suspect]
     Active Substance: ONABOTULINUMTOXINA
     Dosage: 100 IU, UNK
     Route: 065
     Dates: start: 201110, end: 201110
  20. LAMOTRIGINE. [Suspect]
     Active Substance: LAMOTRIGINE
     Indication: MIGRAINE
     Dosage: 50 MG, QD
     Route: 065
     Dates: start: 201110
  21. SIBELIUM [FLUNARIZINE DIHYDROCHLORIDE] [Suspect]
     Active Substance: FLUNARIZINE HYDROCHLORIDE
     Indication: MIGRAINE
     Dosage: 5 MG, UNK
     Route: 065

REACTIONS (5)
  - Product use in unapproved indication [Unknown]
  - Insomnia [Unknown]
  - Drug abuse [Unknown]
  - Paraesthesia [Unknown]
  - Therapy partial responder [Unknown]

NARRATIVE: CASE EVENT DATE: 200902
